FAERS Safety Report 13180944 (Version 1)
Quarter: 2017Q1

REPORT INFORMATION
  Report Type: Spontaneous
  Country: US (occurrence: US)
  Receive Date: 20170202
  Receipt Date: 20170202
  Transmission Date: 20170428
  Serious: No
  Sender: FDA-Public Use
  Company Number: US-SMITH AND NEPHEW, INC-2016SMT00110

PATIENT
  Sex: Female
  Weight: 81.63 kg

DRUGS (7)
  1. REGRANEX [Suspect]
     Active Substance: BECAPLERMIN
     Indication: WOUND
     Dosage: UNK
     Route: 061
     Dates: start: 20151208, end: 201601
  2. LISINOPRIL. [Concomitant]
     Active Substance: LISINOPRIL
     Dosage: 40 MG, 1X/DAY
  3. METFORMIN HYDROCHLORIDE. [Concomitant]
     Active Substance: METFORMIN HYDROCHLORIDE
     Dosage: 850 MG, 1X/DAY
  4. ASPIRIN. [Concomitant]
     Active Substance: ASPIRIN
     Dosage: UNK, 1X/DAY
  5. ATENOLOL. [Concomitant]
     Active Substance: ATENOLOL
     Dosage: 25 MG, 1X/DAY
  6. PROBENECID. [Concomitant]
     Active Substance: PROBENECID
     Dosage: 500 MG, 2X/DAY
  7. HYDROCHLOROTHIAZIDE. [Concomitant]
     Active Substance: HYDROCHLOROTHIAZIDE
     Dosage: 25 MG, 1X/DAY

REACTIONS (3)
  - Inappropriate schedule of drug administration [Unknown]
  - Drug ineffective [Unknown]
  - Application site haemorrhage [Unknown]

NARRATIVE: CASE EVENT DATE: 2016
